FAERS Safety Report 6669491-X (Version None)
Quarter: 2010Q2

REPORT INFORMATION
  Report Type: 
  Country: None (occurrence: None)
  Receive Date: 20100406
  Receipt Date: 20100329
  Transmission Date: 20101027
  Serious: Yes (Other)
  Sender: FDA-Public Use
  Company Number: PHHY2010MX03236

PATIENT
  Sex: Female

DRUGS (6)
  1. EXELON [Suspect]
     Indication: PARKINSON'S DISEASE
     Dosage: 4.6 MG, QD
     Route: 062
     Dates: start: 20091101
  2. EXELON [Suspect]
     Dosage: 9.5 MG, QD
     Route: 062
     Dates: start: 20100110, end: 20100127
  3. PLAVIX [Concomitant]
  4. PRISTIQ [Concomitant]
  5. PROPRANOLOL [Concomitant]
  6. TRILEPTAL [Concomitant]
     Indication: TRIGEMINAL NEURALGIA
     Dosage: UNK

REACTIONS (3)
  - FALL [None]
  - HYPOXIA [None]
  - SYNCOPE [None]
